FAERS Safety Report 5517719-1 (Version None)
Quarter: 2007Q4

REPORT INFORMATION
  Report Type: 
  Country: None (occurrence: None)
  Receive Date: 20071113
  Receipt Date: 20071030
  Transmission Date: 20080405
  Serious: No
  Sender: FDA-Public Use
  Company Number: US-1164343

PATIENT
  Age: 49 Year
  Sex: Male
  Weight: 104.3273 kg

DRUGS (1)
  1. VIGAMOX [Suspect]
     Indication: ULCERATIVE KERATITIS
     Dosage: (2 GTT Q1H OPHTHALMIC)
     Route: 047
     Dates: start: 20070915, end: 20070930

REACTIONS (2)
  - ATRIAL FIBRILLATION [None]
  - BLOOD PRESSURE DECREASED [None]
